FAERS Safety Report 22655273 (Version 1)
Quarter: 2023Q2

REPORT INFORMATION
  Report Type: Spontaneous
  Country: US (occurrence: None)
  Receive Date: 20230629
  Receipt Date: 20230629
  Transmission Date: 20230721
  Serious: No
  Sender: FDA-Public Use
  Company Number: None

PATIENT
  Age: 64 Year
  Sex: Male

DRUGS (1)
  1. DALFAMPRIDINE [Suspect]
     Active Substance: DALFAMPRIDINE
     Indication: Multiple sclerosis
     Dosage: 10MG TWICE A DAY ORAL?
     Route: 048
     Dates: start: 20220719

REACTIONS (2)
  - Gait inability [None]
  - Multiple sclerosis relapse [None]

NARRATIVE: CASE EVENT DATE: 20230612
